FAERS Safety Report 17967440 (Version 1)
Quarter: 2020Q2

REPORT INFORMATION
  Report Type: Spontaneous
  Country: US (occurrence: US)
  Receive Date: 20200630
  Receipt Date: 20200630
  Transmission Date: 20200714
  Serious: Yes (Hospitalization)
  Sender: FDA-Public Use
  Company Number: None

PATIENT
  Age: 71 Year
  Sex: Male

DRUGS (6)
  1. ARIPIPRAZOLE TAB 20MG [Concomitant]
     Dates: start: 20200623
  2. TETRABENAZINE. [Suspect]
     Active Substance: TETRABENAZINE
     Indication: HUNTINGTON^S DISEASE
     Route: 048
     Dates: start: 20190601
  3. LISINOPRIL TAB 20MG [Concomitant]
     Active Substance: LISINOPRIL
     Dates: start: 20200610
  4. DOK CAP 100MG [Concomitant]
  5. ATORVASTATIN TAB 10MG [Concomitant]
  6. OXYCOD/APAP TAB 5-325MG [Concomitant]
     Dates: start: 20200626

REACTIONS (2)
  - Coronavirus test negative [None]
  - Coronavirus test positive [None]

NARRATIVE: CASE EVENT DATE: 20200626
